FAERS Safety Report 5803026-6 (Version None)
Quarter: 2008Q2

REPORT INFORMATION
  Report Type: 
  Country: None (occurrence: None)
  Receive Date: 20080626
  Receipt Date: 20080313
  Transmission Date: 20081010
  Serious: Yes (Other)
  Sender: FDA-Public Use
  Company Number: A03200801099

PATIENT
  Age: 21 Year
  Sex: Male

DRUGS (1)
  1. AMBIEN CR [Suspect]
     Dosage: ORAL
     Route: 048

REACTIONS (3)
  - AGGRESSION [None]
  - DISORIENTATION [None]
  - SCREAMING [None]
